FAERS Safety Report 14775887 (Version 1)
Quarter: 2018Q2

REPORT INFORMATION
  Report Type: Spontaneous
  Country: US (occurrence: US)
  Receive Date: 20180418
  Receipt Date: 20180418
  Transmission Date: 20180711
  Serious: Yes (Other)
  Sender: FDA-Public Use
  Company Number: US-TEVA-2018-US-882637

PATIENT
  Age: 67 Year
  Sex: Female

DRUGS (7)
  1. ETOPOSIDE. [Suspect]
     Active Substance: ETOPOSIDE
     Indication: LUNG ADENOCARCINOMA STAGE II
     Dosage: SUBSEQUENT RE-INDUCTION WITH MITOXANTRONE AND CYTARABINE
     Route: 065
  2. CISPLATIN. [Concomitant]
     Active Substance: CISPLATIN
     Indication: LUNG ADENOCARCINOMA STAGE II
     Route: 065
  3. CYTARABINE. [Concomitant]
     Active Substance: CYTARABINE
     Indication: LUNG ADENOCARCINOMA STAGE II
     Dosage: INDUCTION CHEMOTHERAPY
     Route: 065
  4. MITOXANTRONE [Concomitant]
     Active Substance: MITOXANTRONE HYDROCHLORIDE
     Indication: LUNG ADENOCARCINOMA STAGE II
     Route: 065
  5. CYTARABINE. [Concomitant]
     Active Substance: CYTARABINE
     Indication: LUNG ADENOCARCINOMA STAGE II
     Dosage: RE-INDUCTION WITH MITOXANTRONE AND ETOPOSIDE
     Route: 065
  6. ETOPOSIDE. [Suspect]
     Active Substance: ETOPOSIDE
     Indication: LUNG ADENOCARCINOMA STAGE II
     Dosage: INITIAL TREATMENT WITH CISPLATIN
     Route: 065
  7. IDARUBICIN [Concomitant]
     Active Substance: IDARUBICIN
     Indication: LUNG ADENOCARCINOMA STAGE II
     Route: 065

REACTIONS (3)
  - Myeloproliferative neoplasm [Unknown]
  - Chloroma [Unknown]
  - Myelodysplastic syndrome [Unknown]
